FAERS Safety Report 9803012 (Version 2)
Quarter: 2015Q1

REPORT INFORMATION
  Report Type: Spontaneous
  Country: US (occurrence: US)
  Receive Date: 20140108
  Receipt Date: 20150225
  Transmission Date: 20150721
  Serious: Yes (Death, Other)
  Sender: FDA-Public Use
  Company Number: US-JNJFOC-20131218301

PATIENT

DRUGS (10)
  1. CYTARABINE. [Suspect]
     Active Substance: CYTARABINE
     Indication: ACUTE LYMPHOCYTIC LEUKAEMIA
     Route: 065
  2. PONATINIB [Suspect]
     Active Substance: PONATINIB
     Indication: ACUTE LYMPHOCYTIC LEUKAEMIA
     Dosage: DAILY FOR THE FIRST 14 DAYS OF CYCLE 1 THEN CONTINUOUSLY FOR THE SUBSEQUENT 7 CYCLES
     Route: 048
  3. PREDNISONE. [Suspect]
     Active Substance: PREDNISONE
     Indication: ACUTE LYMPHOCYTIC LEUKAEMIA
     Route: 065
  4. CYCLOPHOSPHAMIDE. [Suspect]
     Active Substance: CYCLOPHOSPHAMIDE
     Indication: ACUTE LYMPHOCYTIC LEUKAEMIA
     Dosage: ODD COURSES 1, 3, 5, 7
     Route: 065
  5. OFATUMUMAB [Suspect]
     Active Substance: OFATUMUMAB
     Indication: ACUTE LYMPHOCYTIC LEUKAEMIA
     Dosage: COURSES 1, 3, AND 4
     Route: 065
  6. METHOTREXATE [Suspect]
     Active Substance: METHOTREXATE
     Indication: ACUTE LYMPHOCYTIC LEUKAEMIA
     Dosage: EVEN COURSES 2, 4, 6, 8
     Route: 065
  7. DOXORUBICIN HYDROCHLORIDE. [Suspect]
     Active Substance: DOXORUBICIN HYDROCHLORIDE
     Indication: ACUTE LYMPHOCYTIC LEUKAEMIA
     Dosage: ODD COURSES 1, 3, 5, 7
     Route: 042
  8. VINCRISTINE [Suspect]
     Active Substance: VINCRISTINE
     Indication: ACUTE LYMPHOCYTIC LEUKAEMIA
     Dosage: ODD COURSES 1, 3, 5, 7
     Route: 065
  9. RITUXIMAB [Suspect]
     Active Substance: RITUXIMAB
     Indication: ACUTE LYMPHOCYTIC LEUKAEMIA
     Dosage: ADMINISTERED DURING THE FIRST 4 CYCLES
     Route: 065
  10. DEXAMETHASONE. [Suspect]
     Active Substance: DEXAMETHASONE
     Indication: ACUTE LYMPHOCYTIC LEUKAEMIA
     Dosage: ODD COURSES 1, 3, 5, 7
     Route: 065

REACTIONS (17)
  - Multi-organ failure [Fatal]
  - Septic shock [Fatal]
  - Platelet count abnormal [Unknown]
  - Rash [Unknown]
  - Febrile neutropenia [Unknown]
  - Myocardial infarction [Fatal]
  - Pulmonary embolism [Unknown]
  - Sepsis [Fatal]
  - Neutrophil count abnormal [Unknown]
  - Blood bilirubin increased [Unknown]
  - Haemorrhage intracranial [Fatal]
  - Pancreatitis [Unknown]
  - Myocardial infarction [Unknown]
  - Liver function test abnormal [Unknown]
  - Renal vein thrombosis [Unknown]
  - Neuropathy peripheral [Unknown]
  - Product use issue [Unknown]
